FAERS Safety Report 10616019 (Version 3)
Quarter: 2015Q1

REPORT INFORMATION
  Report Type: Spontaneous
  Country: US (occurrence: US)
  Receive Date: 20141201
  Receipt Date: 20150312
  Transmission Date: 20150720
  Serious: Yes (Hospitalization)
  Sender: FDA-Public Use
  Company Number: US-JNJFOC-20141113597

PATIENT
  Age: 8 Decade
  Sex: Female

DRUGS (1)
  1. XARELTO [Suspect]
     Active Substance: RIVAROXABAN
     Indication: DEEP VEIN THROMBOSIS
     Route: 048

REACTIONS (8)
  - Hypoxia [Unknown]
  - Thrombosis [Unknown]
  - Urinary tract infection [Unknown]
  - Peripheral swelling [Unknown]
  - Haemoglobin decreased [Recovering/Resolving]
  - Contusion [Unknown]
  - Mental status changes [Unknown]
  - Fracture [Unknown]
